FAERS Safety Report 8182129-8 (Version None)
Quarter: 2012Q1

REPORT INFORMATION
  Report Type: 
  Country: None (occurrence: None)
  Receive Date: 20120302
  Receipt Date: 20111123
  Transmission Date: 20120608
  Serious: Yes (Other)
  Sender: FDA-Public Use
  Company Number: PHHY2011KR38045

PATIENT
  Sex: Male

DRUGS (3)
  1. EXJADE [Suspect]
     Indication: IRON OVERLOAD
     Dosage: UNK UKN, UNK
     Route: 048
     Dates: start: 20100612
  2. EXJADE [Suspect]
     Dosage: UNK UKN, UNK
     Route: 048
     Dates: start: 20100929
  3. CYPOL [Concomitant]
     Dosage: 75 MG, UNK

REACTIONS (4)
  - GRAFT VERSUS HOST DISEASE [None]
  - PLATELET COUNT DECREASED [None]
  - ASTHENIA [None]
  - EATING DISORDER SYMPTOM [None]
